FAERS Safety Report 5254748-X (Version None)
Quarter: 2007Q1

REPORT INFORMATION
  Report Type: 
  Country: None (occurrence: None)
  Receive Date: 20070228
  Receipt Date: 20070216
  Transmission Date: 20070707
  Serious: Yes (Other)
  Sender: FDA-Public Use
  Company Number: RENA-12124

PATIENT
  Age: 81 Year
  Sex: Female

DRUGS (7)
  1. RENAGEL [Suspect]
     Indication: HYPERPHOSPHATAEMIA
     Dosage: 2.4 G TID PO
     Route: 048
     Dates: start: 20010101
  2. COZAAR [Concomitant]
  3. ASACOL [Concomitant]
  4. LABETALOL HYDROCHLOLRIDE [Concomitant]
  5. NORVASC [Concomitant]
  6. ISOSORBIDE MONONITRATE [Concomitant]
  7. HOME OXYGEN [Concomitant]

REACTIONS (5)
  - METASTASES TO BONE [None]
  - METASTASES TO KIDNEY [None]
  - METASTASES TO LUNG [None]
  - METASTATIC NEOPLASM [None]
  - PULMONARY OEDEMA [None]
